FAERS Safety Report 21844624 (Version 1)
Quarter: 2023Q1

REPORT INFORMATION
  Report Type: Spontaneous
  Country: IN (occurrence: IN)
  Receive Date: 20230110
  Receipt Date: 20230110
  Transmission Date: 20230417
  Serious: Yes (Other)
  Sender: FDA-Public Use
  Company Number: IN-PFIZER INC-2021023866

PATIENT
  Age: 63 Year
  Sex: Female
  Weight: 54 kg

DRUGS (7)
  1. PALBOCICLIB [Suspect]
     Active Substance: PALBOCICLIB
     Indication: Breast cancer
     Dosage: 125 MG, ONCE DAILY FOR 21/28 DAYS AND BY 7 DAYS OFF
     Route: 048
     Dates: start: 202002
  2. PALBOCICLIB [Suspect]
     Active Substance: PALBOCICLIB
     Dosage: 100 MG,3 WEEKS ON/1 WEEK OFF
     Route: 048
  3. LETROZOLE [Concomitant]
     Active Substance: LETROZOLE
     Dosage: 2.5 MG, 1X/DAY
     Route: 048
     Dates: start: 202002
  4. SHELCAL [CALCIUM CARBONATE;COLECALCIFEROL] [Concomitant]
     Dosage: 500 MG, 2X/DAY
     Route: 048
  5. SHELCAL [CALCIUM CARBONATE;COLECALCIFEROL] [Concomitant]
     Dosage: 500 MG (EVERY 12HRS DAILY)
  6. VITAMIN D3 [Concomitant]
     Active Substance: CHOLECALCIFEROL
     Dosage: 60 K UNITS, ONCE MONTHLY (EVERY 28 DAYS)
  7. ULTRACET [Concomitant]
     Active Substance: ACETAMINOPHEN\TRAMADOL HYDROCHLORIDE
     Indication: Pain
     Dosage: 1 DF (SOS)

REACTIONS (13)
  - Abdominal rigidity [Unknown]
  - Abdominal discomfort [Unknown]
  - Constipation [Unknown]
  - Dysuria [Unknown]
  - Pain [Unknown]
  - Back pain [Unknown]
  - Neutrophil count decreased [Unknown]
  - Dyspnoea exertional [Unknown]
  - Neoplasm progression [Unknown]
  - Blood pressure increased [Unknown]
  - Haemoglobin decreased [Unknown]
  - Platelet count decreased [Unknown]
  - Blood creatinine increased [Unknown]
